FAERS Safety Report 20223068 (Version 3)
Quarter: 2022Q2

REPORT INFORMATION
  Report Type: Spontaneous
  Country: US (occurrence: US)
  Receive Date: 20211223
  Receipt Date: 20220517
  Transmission Date: 20220720
  Serious: No
  Sender: FDA-Public Use
  Company Number: US-PFIZER INC-202101275205

PATIENT
  Age: 70 Year
  Sex: Male

DRUGS (3)
  1. XELJANZ XR [Suspect]
     Active Substance: TOFACITINIB CITRATE
     Dosage: 11 MG
     Dates: start: 20210105
  2. XELJANZ XR [Suspect]
     Active Substance: TOFACITINIB CITRATE
     Dosage: 11 MG
     Dates: start: 20211007
  3. XELJANZ XR [Suspect]
     Active Substance: TOFACITINIB CITRATE
     Dosage: 11 MG
     Dates: start: 20220219

REACTIONS (6)
  - Pain [Unknown]
  - Pain in extremity [Unknown]
  - Joint swelling [Unknown]
  - Blood pressure increased [Unknown]
  - Product dose omission issue [Unknown]
  - Laryngitis [Unknown]

NARRATIVE: CASE EVENT DATE: 20210101
